FAERS Safety Report 15615493 (Version 1)
Quarter: 2018Q4

REPORT INFORMATION
  Report Type: Spontaneous
  Country: BR (occurrence: BR)
  Receive Date: 20181114
  Receipt Date: 20181114
  Transmission Date: 20190205
  Serious: Yes (Other)
  Sender: FDA-Public Use
  Company Number: BR-AMGEN-BRASP2018158990

PATIENT
  Age: 79 Year
  Sex: Female

DRUGS (4)
  1. GAZYVA [Concomitant]
     Active Substance: OBINUTUZUMAB
     Indication: LYMPHOMA
     Dosage: 1000 MG, CYCLICAL (D1, D8 AND D15 CYCLE 1 AND D1 CYCLES 2 TO 6)
     Dates: start: 201804
  2. BENDAMUSTINE [Concomitant]
     Active Substance: BENDAMUSTINE
     Indication: LYMPHOMA
     Dosage: 90 MG/M2, CYCLICAL (D1 AND D2 OF EACH CYCLE)
     Dates: start: 201804
  3. PEGFILGRASTIM [Suspect]
     Active Substance: PEGFILGRASTIM
     Indication: PROPHYLAXIS
     Dosage: UNK
     Route: 065
     Dates: start: 201804
  4. RIVAROXABAN [Concomitant]
     Active Substance: RIVAROXABAN
     Indication: PROPHYLAXIS
     Dosage: 10 MG, QD

REACTIONS (1)
  - Sepsis [Recovered/Resolved]

NARRATIVE: CASE EVENT DATE: 2018
